FAERS Safety Report 5903769-X (Version None)
Quarter: 2008Q3

REPORT INFORMATION
  Report Type: 
  Country: None (occurrence: None)
  Receive Date: 20080930
  Receipt Date: 20080918
  Transmission Date: 20090109
  Serious: Yes (Hospitalization, Other)
  Sender: FDA-Public Use
  Company Number: US-ELI_LILLY_AND_COMPANY-US200805004400

PATIENT
  Sex: Male

DRUGS (6)
  1. BYETTA [Suspect]
     Dosage: 5 UG, 2/D
     Dates: start: 20061001, end: 20061119
  2. BYETTA [Suspect]
     Dosage: 10 UG, 2/D
     Dates: start: 20061120, end: 20080207
  3. METFORMIN HCL [Concomitant]
     Dosage: 1000 MG, 2/D
     Dates: start: 20060523
  4. AMARYL [Concomitant]
     Dosage: 4 MG, UNK
     Dates: start: 20060523
  5. OMACOR [Concomitant]
     Dates: start: 20051229
  6. LOPID [Concomitant]
     Dosage: 600 MG, 2/D
     Dates: start: 20010101

REACTIONS (5)
  - BLOOD ALKALINE PHOSPHATASE INCREASED [None]
  - CHOLELITHIASIS [None]
  - DIVERTICULUM [None]
  - PANCREATIC NEUROENDOCRINE TUMOUR [None]
  - RENAL CYST [None]
